FAERS Safety Report 5778681-X (Version None)
Quarter: 2008Q2

REPORT INFORMATION
  Report Type: 
  Country: None (occurrence: None)
  Receive Date: 20080619
  Receipt Date: 20080612
  Transmission Date: 20081010
  Serious: Yes (Other)
  Sender: FDA-Public Use
  Company Number: B0525010A

PATIENT
  Age: 40 Year
  Sex: Female

DRUGS (2)
  1. RETROVIR [Suspect]
     Indication: HIV INFECTION
     Route: 048
     Dates: start: 19980527
  2. COMBIVIR [Suspect]
     Indication: HIV INFECTION
     Dosage: 2TAB PER DAY
     Route: 048
     Dates: start: 19981002

REACTIONS (2)
  - ABDOMINAL DISTENSION [None]
  - LIPODYSTROPHY ACQUIRED [None]
